FAERS Safety Report 5050086-9 (Version None)
Quarter: 2006Q3

REPORT INFORMATION
  Report Type: 
  Country: None (occurrence: None)
  Receive Date: 20060706
  Receipt Date: 20060623
  Transmission Date: 20061208
  Serious: Yes (Other)
  Sender: FDA-Public Use
  Company Number: 2006US-02711

PATIENT
  Age: 36 Year
  Sex: Female

DRUGS (1)
  1. ISOTRETINOIN [Suspect]
     Dosage: 40 MG,BID
     Dates: start: 20060328, end: 20060621

REACTIONS (5)
  - DIZZINESS [None]
  - HEADACHE [None]
  - MENTAL IMPAIRMENT [None]
  - MOOD SWINGS [None]
  - WEIGHT DECREASED [None]
